FAERS Safety Report 12638572 (Version 4)
Quarter: 2016Q4

REPORT INFORMATION
  Report Type: Report from Study
  Country: US (occurrence: US)
  Receive Date: 20160809
  Receipt Date: 20161006
  Transmission Date: 20170207
  Serious: Yes (Hospitalization)
  Sender: FDA-Public Use
  Company Number: US-BIOGEN-2016BI00275059

PATIENT
  Age: 45 Year
  Sex: Female

DRUGS (1)
  1. TECFIDERA [Suspect]
     Active Substance: DIMETHYL FUMARATE
     Indication: MULTIPLE SCLEROSIS
     Route: 048
     Dates: start: 20160201, end: 20160801

REACTIONS (8)
  - Decreased immune responsiveness [Unknown]
  - Flavivirus test positive [Not Recovered/Not Resolved]
  - Burning sensation [Unknown]
  - Speech disorder [Unknown]
  - Blood count abnormal [Not Recovered/Not Resolved]
  - Flavivirus infection [Not Recovered/Not Resolved]
  - Hypoaesthesia [Unknown]
  - Escherichia test positive [Not Recovered/Not Resolved]

NARRATIVE: CASE EVENT DATE: 201607
